FAERS Safety Report 22393425 (Version 4)
Quarter: 2023Q4

REPORT INFORMATION
  Report Type: Report from Study
  Country: US (occurrence: US)
  Receive Date: 20230601
  Receipt Date: 20231114
  Transmission Date: 20240110
  Serious: Yes (Other)
  Sender: FDA-Public Use
  Company Number: US-ABBVIE-5186625

PATIENT
  Sex: Female
  Weight: 90.718 kg

DRUGS (1)
  1. HUMIRA [Suspect]
     Active Substance: ADALIMUMAB
     Indication: Psoriatic arthropathy
     Dosage: CITRATE FREE , FORM STRENGTH: 40 MILLIGRAM
     Route: 058
     Dates: start: 20210102

REACTIONS (4)
  - Blindness [Unknown]
  - Macular degeneration [Unknown]
  - Arthropathy [Unknown]
  - Memory impairment [Unknown]
